FAERS Safety Report 20822616 (Version 1)
Quarter: 2022Q2

REPORT INFORMATION
  Report Type: Spontaneous
  Country: TR (occurrence: TR)
  Receive Date: 20220512
  Receipt Date: 20220512
  Transmission Date: 20220721
  Serious: Yes (Other)
  Sender: FDA-Public Use
  Company Number: TR-OTSUKA-2022_026319

PATIENT
  Age: 21 Month
  Sex: Female
  Weight: 11 kg

DRUGS (4)
  1. BUSULFAN [Suspect]
     Active Substance: BUSULFAN
     Indication: Allogenic stem cell transplantation
     Dosage: FROM DAY - 6 TO - 3
     Route: 065
  2. FLUDARABINE [Suspect]
     Active Substance: FLUDARABINE PHOSPHATE
     Indication: Allogenic stem cell transplantation
     Dosage: FROM DAY - 6 TO - 3
     Route: 065
  3. METHOTREXATE [Suspect]
     Active Substance: METHOTREXATE
     Indication: Graft versus host disease
     Dosage: ON +1, +3, AND +6 DAY
     Route: 065
  4. CYCLOSPORINE [Suspect]
     Active Substance: CYCLOSPORINE
     Indication: Graft versus host disease
     Dosage: 3 MG/KG, QD
     Route: 042

REACTIONS (3)
  - Cytomegalovirus infection reactivation [Unknown]
  - Cytomegalovirus gastroenteritis [Unknown]
  - Mucosal inflammation [Unknown]
